FAERS Safety Report 15220534 (Version 2)
Quarter: 2019Q4

REPORT INFORMATION
  Report Type: Spontaneous
  Country: FR (occurrence: FR)
  Receive Date: 20180731
  Receipt Date: 20191202
  Transmission Date: 20200122
  Serious: Yes (Hospitalization)
  Sender: FDA-Public Use
  Company Number: FR-MYLANLABS-2018M1058613

PATIENT
  Age: 65 Year
  Sex: Female

DRUGS (2)
  1. PIPERACILLIN/TAZOBACTAM [Suspect]
     Active Substance: PIPERACILLIN SODIUM\TAZOBACTAM SODIUM
     Indication: ERYSIPELAS
     Dosage: 12 G, QD
     Route: 042
     Dates: start: 20180113, end: 20180130
  2. VANCOMYCINE MYLAN 250 MG, POUDRE POUR SOLUTION POUR PERFUSION (IV) [Suspect]
     Active Substance: VANCOMYCIN
     Indication: CLOSTRIDIUM TEST POSITIVE
     Dosage: 1000 MG, QD
     Dates: start: 20180114

REACTIONS (2)
  - Cell death [Recovered/Resolved]
  - Cholestasis [Recovered/Resolved]

NARRATIVE: CASE EVENT DATE: 20180125
